FAERS Safety Report 25114854 (Version 1)
Quarter: 2025Q1

REPORT INFORMATION
  Report Type: Spontaneous
  Country: BG (occurrence: BG)
  Receive Date: 20250324
  Receipt Date: 20250324
  Transmission Date: 20250409
  Serious: Yes (Other)
  Sender: MYLAN
  Company Number: BG-AMGEN-BGRSP2025044929

PATIENT
  Age: 50 Year
  Sex: Male

DRUGS (7)
  1. OXALIPLATIN [Suspect]
     Active Substance: OXALIPLATIN
     Indication: Colorectal cancer metastatic
  2. PANITUMUMAB [Suspect]
     Active Substance: PANITUMUMAB
     Indication: Colorectal cancer metastatic
  3. PANITUMUMAB [Suspect]
     Active Substance: PANITUMUMAB
  4. FLUOROURACIL [Suspect]
     Active Substance: FLUOROURACIL
     Indication: Colorectal cancer metastatic
     Dosage: UNK UNK, Q2W (12 COURSES) (DOSAGE1: UNIT=NOT AVAILABLE)
     Dates: start: 202109, end: 202203
  5. LEUCOVORIN [Suspect]
     Active Substance: LEUCOVORIN\LEUCOVORIN CALCIUM
     Indication: Colorectal cancer metastatic
     Dosage: UNK UNK, Q2W (12 COURSES) (DOSAGE1: UNIT=NOT AVAILABLE)
     Dates: start: 202109, end: 202203
  6. FLUOROURACIL\LEUCOVORIN [Suspect]
     Active Substance: FLUOROURACIL\LEUCOVORIN
     Indication: Colorectal cancer metastatic
  7. PALBOCICLIB [Concomitant]
     Active Substance: PALBOCICLIB

REACTIONS (2)
  - Colorectal cancer metastatic [Unknown]
  - Skin toxicity [Unknown]

NARRATIVE: CASE EVENT DATE: 20240601
